FAERS Safety Report 8334131-0 (Version None)
Quarter: 2012Q2

REPORT INFORMATION
  Report Type: 
  Country: None (occurrence: None)
  Receive Date: 20120503
  Receipt Date: 20120330
  Transmission Date: 20120825
  Serious: Yes (Hospitalization)
  Sender: FDA-Public Use
  Company Number: JP-ROCHE-1008118

PATIENT
  Sex: Male
  Weight: 45.2 kg

DRUGS (1)
  1. ROCEPHIN [Suspect]
     Indication: APPENDICITIS
     Route: 041
     Dates: start: 20110113, end: 20110115

REACTIONS (1)
  - RENAL FAILURE ACUTE [None]
